FAERS Safety Report 20517390 (Version 1)
Quarter: 2022Q1

REPORT INFORMATION
  Report Type: Spontaneous
  Country: BR (occurrence: BR)
  Receive Date: 20220225
  Receipt Date: 20220225
  Transmission Date: 20220423
  Serious: Yes (Other)
  Sender: FDA-Public Use
  Company Number: BR-SA-SAC20220223001383

PATIENT
  Age: 50 Year
  Sex: Female
  Weight: 60 kg

DRUGS (1)
  1. FABRAZYME [Suspect]
     Active Substance: AGALSIDASE BETA
     Indication: Fabry^s disease
     Dosage: 12 ML, Q15D
     Route: 041

REACTIONS (4)
  - Femur fracture [Unknown]
  - Pain [Unknown]
  - Musculoskeletal disorder [Unknown]
  - Haemodialysis [Unknown]
